FAERS Safety Report 10399622 (Version 1)
Quarter: 2014Q3

REPORT INFORMATION
  Report Type: Spontaneous
  Country: IT (occurrence: IT)
  Receive Date: 20140821
  Receipt Date: 20140821
  Transmission Date: 20150326
  Serious: Yes (Other)
  Sender: FDA-Public Use
  Company Number: PHHY2014IT100990

PATIENT
  Sex: Male

DRUGS (2)
  1. POTASSIUM CANRENOATE [Suspect]
     Active Substance: CANRENOATE POTASSIUM
     Dates: start: 20140101, end: 20140616
  2. BISOPROLOL [Suspect]
     Active Substance: BISOPROLOL
     Dosage: 5 MG, QD
     Route: 048
     Dates: start: 20140101, end: 20140616

REACTIONS (1)
  - Hyperkalaemia [Recovering/Resolving]

NARRATIVE: CASE EVENT DATE: 20140616
